FAERS Safety Report 7179080-9 (Version None)
Quarter: 2010Q4

REPORT INFORMATION
  Report Type: 
  Country: None (occurrence: None)
  Receive Date: 20101221
  Receipt Date: 20101217
  Transmission Date: 20110411
  Serious: No
  Sender: FDA-Public Use
  Company Number: US-PFIZER INC-2010175581

PATIENT
  Sex: Female
  Weight: 81.6 kg

DRUGS (7)
  1. EFFEXOR [Suspect]
     Indication: DEPRESSION
     Dosage: 150 MG, 1X/DAY
     Route: 048
     Dates: start: 20101216
  2. EFFEXOR [Suspect]
     Indication: ANXIETY
  3. CITALOPRAM [Concomitant]
     Dosage: UNK
  4. CLONAZEPAM [Concomitant]
     Dosage: 0.5 MG, UNK
  5. METFORMIN [Concomitant]
     Indication: DIABETES MELLITUS
     Dosage: 500 MG, 2X/DAY
  6. LISINOPRIL [Concomitant]
     Dosage: UNK
  7. ASENAPINE [Concomitant]
     Indication: BIPOLAR DISORDER
     Route: 060

REACTIONS (1)
  - FEELING ABNORMAL [None]
